FAERS Safety Report 14482722 (Version 1)
Quarter: 2018Q1

REPORT INFORMATION
  Report Type: Spontaneous
  Country: DE (occurrence: DE)
  Receive Date: 20180203
  Receipt Date: 20180203
  Transmission Date: 20180509
  Serious: Yes (Other)
  Sender: FDA-Public Use
  Company Number: DE-TEVA-2018-DE-852025

PATIENT
  Age: 46 Year
  Sex: Female

DRUGS (6)
  1. ESTRADIOL. [Suspect]
     Active Substance: ESTRADIOL
     Dosage: 2 DOSAGE FORMS DAILY; 2 DF 1/1 DAY(S) (2 DOSAGE FORMS,1 IN 1 D)
     Route: 062
     Dates: start: 201606, end: 201707
  2. PROGESTERONE. [Suspect]
     Active Substance: PROGESTERONE
     Dosage: 1 DOSAGE FORMS DAILY; REDUCED TO 1 CAPSULE (100 MG, 1 IN 1 D)
     Route: 048
     Dates: start: 201707, end: 20170829
  3. FAMENITA [Concomitant]
     Active Substance: PROGESTERONE
     Indication: PREVENTION OF ENDOMETRIAL HYPERPLASIA
     Dosage: 100 MILLIGRAM DAILY; 1 CAPSULE (100 MG) (EVERY EVENING)
     Route: 048
     Dates: start: 20170811
  4. PROGESTERONE. [Suspect]
     Active Substance: PROGESTERONE
     Indication: PREVENTION OF ENDOMETRIAL HYPERPLASIA
     Dosage: 2 DOSAGE FORMS DAILY; 2 DF 1/1 DAY(S) (100 MG, 2 IN 1 D)
     Route: 048
     Dates: start: 201606, end: 201707
  5. THYRONAJOD [Concomitant]
     Active Substance: LEVOTHYROXINE SODIUM\POTASSIUM IODIDE
     Indication: THYROID HORMONE REPLACEMENT THERAPY
     Dosage: UNK
     Route: 065
  6. ESTRADIOL. [Suspect]
     Active Substance: ESTRADIOL
     Indication: HORMONE REPLACEMENT THERAPY
     Dosage: 1 DOSAGE FORMS DAILY; REDUCED TO 1 PUFF (1 DOSAGE FORMS,1 IN 1 D)
     Route: 062
     Dates: start: 201707, end: 20170810

REACTIONS (17)
  - Temperature intolerance [Not Recovered/Not Resolved]
  - Oestradiol decreased [Unknown]
  - Lumbar vertebral fracture [Recovered/Resolved]
  - Arthropod bite [Recovered/Resolved]
  - Erythema [Not Recovered/Not Resolved]
  - Drug effect decreased [Unknown]
  - Hypoaesthesia [Unknown]
  - Photosensitivity reaction [Not Recovered/Not Resolved]
  - Influenza [Unknown]
  - Androgenetic alopecia [Not Recovered/Not Resolved]
  - Therapeutic response unexpected [Unknown]
  - Hyperaesthesia [Not Recovered/Not Resolved]
  - Paraesthesia [Not Recovered/Not Resolved]
  - Feeling hot [Not Recovered/Not Resolved]
  - Body temperature decreased [Not Recovered/Not Resolved]
  - Asthenia [Not Recovered/Not Resolved]
  - Night sweats [Not Recovered/Not Resolved]

NARRATIVE: CASE EVENT DATE: 2017
